FAERS Safety Report 7967433-8 (Version None)
Quarter: 2011Q4

REPORT INFORMATION
  Report Type: 
  Country: None (occurrence: None)
  Receive Date: 20111207
  Receipt Date: 20111121
  Transmission Date: 20120403
  Serious: Yes (Hospitalization, Other)
  Sender: FDA-Public Use
  Company Number: CIP11000521

PATIENT
  Age: 67 Year
  Sex: Female

DRUGS (15)
  1. BONIVA [Suspect]
     Indication: OSTEOPOROSIS
     Dosage: 150 MG, 1 /MONTH, ORAL
     Route: 048
     Dates: start: 20060101, end: 20081104
  2. AVALIDE [Concomitant]
  3. ACTONEL [Suspect]
     Dosage: ORAL
     Route: 048
  4. LISINOPRIL [Concomitant]
  5. BONIVA [Suspect]
     Indication: OSTEOPOROSIS
     Dosage: 150 MG, 1 /MONTH, ORAL
     Route: 048
  6. FOSAMAX [Suspect]
     Indication: OSTEOPOROSIS
     Dosage: 70 MG, 1 /WEEK, ORAL
     Route: 048
     Dates: start: 20040101, end: 20060101
  7. TOPROL-XL [Concomitant]
  8. ASPIRIN [Concomitant]
  9. BONIVA [Suspect]
     Indication: OSTEOPOROSIS
     Dosage: 150 MG, 1 /MONTH, ORAL
     Route: 048
     Dates: start: 20090526, end: 20100301
  10. DIDRONEL [Suspect]
     Indication: OSTEOPOROSIS
     Dosage: ORAL
     Route: 048
  11. ALENDRONATE SODIUM [Suspect]
     Indication: OSTEOPOROSIS
     Dosage: 70 MG, 1 /WEEK
     Dates: start: 20081104, end: 20090526
  12. SIMVASTATIN [Concomitant]
  13. CELEBREX [Concomitant]
  14. PROZAC [Concomitant]
  15. FOSAMAX [Suspect]
     Indication: OSTEOPOROSIS
     Dosage: 5 MG
     Dates: start: 19980101, end: 20040101

REACTIONS (24)
  - FRACTURE DISPLACEMENT [None]
  - FALL [None]
  - FRACTURE NONUNION [None]
  - GAIT DISTURBANCE [None]
  - ANKLE FRACTURE [None]
  - SCIATICA [None]
  - MYOPATHY [None]
  - ARTHRALGIA [None]
  - MUSCULAR WEAKNESS [None]
  - DEVICE FAILURE [None]
  - BONE PAIN [None]
  - DEVICE BREAKAGE [None]
  - MYALGIA [None]
  - DEVICE DAMAGE [None]
  - BACK PAIN [None]
  - SYNOVIAL CYST [None]
  - PAIN IN EXTREMITY [None]
  - MUSCLE DISORDER [None]
  - IMPAIRED HEALING [None]
  - ASTHENIA [None]
  - FEMUR FRACTURE [None]
  - PAIN [None]
  - JOINT EFFUSION [None]
  - JOINT INSTABILITY [None]
